FAERS Safety Report 25211344 (Version 2)
Quarter: 2025Q3

REPORT INFORMATION
  Report Type: Report from Study
  Country: US (occurrence: US)
  Receive Date: 20250417
  Receipt Date: 20250803
  Transmission Date: 20251021
  Serious: Yes (Other)
  Sender: ALEXION PHARMACEUTICALS
  Company Number: US-AstraZeneca-CH-00849090A

PATIENT
  Sex: Male

DRUGS (1)
  1. ULTOMIRIS [Suspect]
     Active Substance: RAVULIZUMAB-CWVZ
     Route: 065

REACTIONS (7)
  - Immunodeficiency [Unknown]
  - Influenza [Recovered/Resolved]
  - Otitis media [Recovered/Resolved]
  - Gingivitis [Unknown]
  - Gastrointestinal pain [Unknown]
  - Nervous system disorder [Unknown]
  - Gingival pain [Unknown]
